FAERS Safety Report 5937857-9 (Version None)
Quarter: 2008Q4

REPORT INFORMATION
  Report Type: 
  Country: None (occurrence: None)
  Receive Date: 20081031
  Receipt Date: 20081022
  Transmission Date: 20090506
  Serious: Yes (Hospitalization)
  Sender: FDA-Public Use
  Company Number: US-ABBOTT-08P-163-0483243-00

PATIENT
  Sex: Female
  Weight: 124.4 kg

DRUGS (9)
  1. HUMIRA [Suspect]
     Indication: CROHN'S DISEASE
     Route: 058
     Dates: start: 20080701
  2. ENOXAPARIN SODIUM [Suspect]
     Indication: PULMONARY EMBOLISM
     Route: 058
     Dates: start: 20081001
  3. MESALAMINE [Concomitant]
     Indication: CROHN'S DISEASE
  4. AZATHIOPRINE [Concomitant]
     Indication: DRUG USE FOR UNKNOWN INDICATION
  5. RANITIDINE [Concomitant]
     Indication: PROPHYLAXIS
     Route: 048
  6. RANITIDINE [Concomitant]
     Indication: ABDOMINAL DISCOMFORT
  7. POTASSIUM CITRATE [Concomitant]
     Indication: NEPHROLITHIASIS
     Route: 048
  8. LISINOPRIL [Concomitant]
     Indication: PROPHYLAXIS
     Route: 048
  9. LISINOPRIL [Concomitant]
     Indication: RENAL DISORDER

REACTIONS (3)
  - DYSPNOEA [None]
  - INJECTION SITE HAEMATOMA [None]
  - PULMONARY EMBOLISM [None]
